FAERS Safety Report 5153555-6 (Version None)
Quarter: 2006Q4

REPORT INFORMATION
  Report Type: 
  Country: None (occurrence: None)
  Receive Date: 20061113
  Receipt Date: 20061026
  Transmission Date: 20070319
  Serious: Yes (Hospitalization)
  Sender: FDA-Public Use
  Company Number: 2006RR-04299

PATIENT
  Age: 52 Year
  Sex: Female
  Weight: 40 kg

DRUGS (6)
  1. CEFADROXIL (CEFADROXIL) [Suspect]
     Dosage: 500 MG, BID, ORAL
     Route: 048
     Dates: start: 20060803, end: 20060803
  2. ALENDRONATE SODIUM [Concomitant]
  3. CALCIUM CARBONATE [Concomitant]
  4. CODEINE PHOSPHATE (CODEINE PHOSPHATE) [Concomitant]
  5. METOCLOPRAMIDE (METOCLOPRAMIDE HYDROCHLORIDE) [Concomitant]
  6. ACETAMINOPHEN [Concomitant]

REACTIONS (2)
  - RASH GENERALISED [None]
  - SWELLING [None]
